FAERS Safety Report 4585101-X (Version None)
Quarter: 2005Q1

REPORT INFORMATION
  Report Type: 
  Country: None (occurrence: None)
  Receive Date: 20050217
  Receipt Date: 20041230
  Transmission Date: 20050727
  Serious: No
  Sender: FDA-Public Use
  Company Number: US-GLAXOSMITHKLINE-A0538849A

PATIENT
  Age: 70 Year
  Sex: Male

DRUGS (17)
  1. WELLBUTRIN XL [Suspect]
     Indication: ILL-DEFINED DISORDER
     Dosage: 150MG PER DAY
     Route: 048
     Dates: start: 20041227
  2. GLUCOPHAGE [Concomitant]
  3. FLOMAX [Concomitant]
  4. TIMOLOL MALEATE [Concomitant]
  5. TRUSOPT [Concomitant]
  6. COREG [Concomitant]
  7. HYDROCHLOROTHIAZIDE [Concomitant]
  8. NEURONTIN [Concomitant]
  9. COZAAR [Concomitant]
  10. ZOCOR [Concomitant]
  11. LANTUS [Concomitant]
  12. NOVOLOG [Concomitant]
  13. PLAVIX [Concomitant]
  14. ROBAXIN [Concomitant]
  15. TYLENOL W/ CODEINE NO. 3 [Concomitant]
  16. LASIX [Concomitant]
  17. AMBIEN [Concomitant]

REACTIONS (1)
  - PHARYNX DISCOMFORT [None]
